FAERS Safety Report 4774633-7 (Version None)
Quarter: 2005Q3

REPORT INFORMATION
  Report Type: 
  Country: None (occurrence: None)
  Receive Date: 20050921
  Receipt Date: 20050601
  Transmission Date: 20060218
  Serious: Yes (Other)
  Sender: FDA-Public Use
  Company Number: FR-BRISTOL-MYERS SQUIBB COMPANY-12991428

PATIENT
  Age: 49 Year
  Sex: Female
  Weight: 67 kg

DRUGS (4)
  1. ABILIFY [Suspect]
     Indication: PSYCHOTIC DISORDER
     Route: 048
     Dates: start: 20050421, end: 20050503
  2. PIPORTIL [Suspect]
     Route: 048
  3. STILNOX [Concomitant]
  4. PRAVASTATIN [Concomitant]

REACTIONS (4)
  - CHEST PAIN [None]
  - EXTRASYSTOLES [None]
  - HEART RATE INCREASED [None]
  - MITRAL VALVE INCOMPETENCE [None]
